FAERS Safety Report 18158402 (Version 2)
Quarter: 2020Q3

REPORT INFORMATION
  Report Type: Spontaneous
  Country: GB (occurrence: GB)
  Receive Date: 20200817
  Receipt Date: 20200831
  Transmission Date: 20201103
  Serious: Yes (Death)
  Sender: FDA-Public Use
  Company Number: NVSC2020GB225341

PATIENT
  Age: 57 Year
  Sex: Male
  Weight: 55.4 kg

DRUGS (21)
  1. TIOTROPIUM BROMIDE [Concomitant]
     Active Substance: TIOTROPIUM BROMIDE
     Indication: CHRONIC OBSTRUCTIVE PULMONARY DISEASE
     Dosage: 5 UG, QD (PUFFS, QUANTITY 1 X 60, FOR INHALATION CARTRIDGE WITH DEVICE CFC FREE)
     Route: 065
  2. CO?AMOXICLAV [Concomitant]
     Active Substance: AMOXICILLIN\CLAVULANATE POTASSIUM
     Indication: PRODUCT USED FOR UNKNOWN INDICATION
     Dosage: 3 DF, QD (500MG/125MG, QUANTITY 42)
     Route: 065
     Dates: start: 20190424
  3. ATAZANAVIR. [Suspect]
     Active Substance: ATAZANAVIR
     Indication: HIV INFECTION
     Dosage: 300 MG, QD
     Route: 048
     Dates: start: 20180924
  4. CLOPIDOGREL [Concomitant]
     Active Substance: CLOPIDOGREL BISULFATE
     Indication: CORONARY ARTERY DISEASE
     Dosage: 75 MG, QD (LIFELONG, QUANTITY 56)
     Route: 065
  5. NITROMIN [Concomitant]
     Indication: PRODUCT USED FOR UNKNOWN INDICATION
     Dosage: 400 UG (SPRAY ONE OR TWO DOSES UNDER TONGUE AND THEN CLOSE MOUTH AS DIRECTED, QUANTITY 1800)
     Route: 065
  6. CLARITHROMYCIN. [Suspect]
     Active Substance: CLARITHROMYCIN
     Indication: CELLULITIS
     Dosage: 1000 MG, QD (QUANTITY 14)
     Route: 048
     Dates: start: 20200226
  7. AMLODIPINE [Concomitant]
     Active Substance: AMLODIPINE BESYLATE
     Indication: HYPOTENSION
     Dosage: 5 MG, QD (QUANTITY 56)
     Route: 065
  8. RITONAVIR. [Suspect]
     Active Substance: RITONAVIR
     Indication: HIV INFECTION
     Dosage: 100 MG, QD
     Route: 048
     Dates: start: 20180904
  9. METHADONE [Suspect]
     Active Substance: METHADONE HYDROCHLORIDE
     Indication: DRUG DEPENDENCE
     Dosage: 20 MG, QD
     Route: 048
  10. CLENIL MODULITE [Concomitant]
     Active Substance: BECLOMETHASONE DIPROPIONATE
     Indication: CHRONIC OBSTRUCTIVE PULMONARY DISEASE
     Dosage: 200 UG, QD (PUFFS VIA SPACER, INHALER. QUANTITY 1 X 200 DOSE)
     Route: 065
  11. DIAZEPAM. [Concomitant]
     Active Substance: DIAZEPAM
     Indication: ANXIETY
     Dosage: 10 MG, QD (NIGHT, QUANTITY 10)
     Route: 065
  12. MONOMIL [Concomitant]
     Active Substance: ISOSORBIDE MONONITRATE
     Indication: ANGINA PECTORIS
     Dosage: 60 MG, QD (MORNING, QUANTITY 56)
     Route: 065
  13. ZOPICLONE [Concomitant]
     Active Substance: ZOPICLONE
     Indication: INSOMNIA
     Dosage: 7.5 MG, QD (NIGHT, QUANTITY 28)
     Route: 065
  14. PREGABALIN. [Concomitant]
     Active Substance: PREGABALIN
     Indication: NEUROPATHY PERIPHERAL
     Dosage: 600 MG, QD (QUANTITY 56)
     Route: 065
  15. TINZAPARIN [Concomitant]
     Active Substance: TINZAPARIN
     Indication: ANTICOAGULANT THERAPY
     Dosage: UNK
     Route: 065
  16. FLUCLOXACILLIN [Concomitant]
     Active Substance: FLUCLOXACILLIN
     Indication: PRODUCT USED FOR UNKNOWN INDICATION
     Dosage: 4000 MG, QD (QUANTITY 56)
     Route: 065
     Dates: start: 20200219
  17. ACICLOVIR [Concomitant]
     Active Substance: ACYCLOVIR
     Indication: PRODUCT USED FOR UNKNOWN INDICATION
     Dosage: 4000 MG, QD (QUANTITY 35)
     Route: 065
     Dates: start: 20200216
  18. DESCOVY [Concomitant]
     Active Substance: EMTRICITABINE\TENOFOVIR ALAFENAMIDE FUMARATE
     Indication: PRODUCT USED FOR UNKNOWN INDICATION
     Dosage: 200 MG, QD
     Route: 065
  19. ACETYLSALICYLIC ACID [Concomitant]
     Active Substance: ASPIRIN
     Indication: CORONARY ARTERY DISEASE
     Dosage: 75 MG, QD
     Route: 065
  20. XYLOCAINE WITH EPINEPHRINE [Concomitant]
     Active Substance: EPINEPHRINE BITARTRATE\LIDOCAINE HYDROCHLORIDE
     Indication: PRODUCT USED FOR UNKNOWN INDICATION
     Dosage: 0.13 DF (100 MICROGRAMS/20ML (1 IN 200,00) TO BE ADMINISTERED BY A DOCTOR, VIAL)
     Route: 065
     Dates: start: 20190828
  21. LIDOCAINE. [Concomitant]
     Active Substance: LIDOCAINE
     Indication: PRODUCT USED FOR UNKNOWN INDICATION
     Dosage: 1 DF, QD (UP TO 12 HOURS FOLLOWED BY A 12 HOUR PLASTER?FREE PERIOD AS DIRECTED, 30)
     Route: 065
     Dates: start: 20190916

REACTIONS (1)
  - Arrhythmia [Fatal]

NARRATIVE: CASE EVENT DATE: 20200226
